FAERS Safety Report 5367268-9 (Version None)
Quarter: 2007Q2

REPORT INFORMATION
  Report Type: 
  Country: None (occurrence: None)
  Receive Date: 20070622
  Receipt Date: 20070604
  Transmission Date: 20071010
  Serious: Yes (Death, Life-Threatening)
  Sender: FDA-Public Use
  Company Number: BR-MERCK-0705BRA00063

PATIENT
  Age: 75 Year
  Sex: Female

DRUGS (11)
  1. CANCIDAS [Suspect]
     Indication: DEVICE RELATED INFECTION
     Route: 041
     Dates: start: 20070503, end: 20070514
  2. CANCIDAS [Suspect]
     Indication: SEPTIC EMBOLUS
     Route: 041
     Dates: start: 20070503, end: 20070514
  3. TEICOPLANIN [Concomitant]
     Route: 065
  4. POLYMYXIN B SULFATE [Concomitant]
     Route: 065
  5. HEPARIN [Concomitant]
     Route: 065
  6. WARFARIN SODIUM [Concomitant]
     Route: 065
  7. PROPOFOL [Concomitant]
     Route: 065
  8. FENTANYL [Concomitant]
     Route: 065
  9. MIDAZOLAM HYDROCHLORIDE [Concomitant]
     Route: 065
  10. NOREPINEPHRINE HYDROCHLORIDE [Concomitant]
     Route: 065
  11. PANTOPRAZOLE SODIUM [Concomitant]
     Route: 065

REACTIONS (2)
  - CONDITION AGGRAVATED [None]
  - HEPATITIS [None]
